FAERS Safety Report 9681117 (Version 1)
Quarter: 2013Q4

REPORT INFORMATION
  Report Type: Spontaneous
  Country: GB (occurrence: GB)
  Receive Date: 20131111
  Receipt Date: 20131111
  Transmission Date: 20140711
  Serious: Yes (Other)
  Sender: FDA-Public Use
  Company Number: GB-NOVOPROD-391681

PATIENT
  Age: 75 Year
  Sex: Female

DRUGS (2)
  1. VICTOZA [Suspect]
     Indication: TYPE 2 DIABETES MELLITUS
     Dosage: UNKNOWN
     Route: 058
     Dates: start: 201110, end: 2013
  2. INSULIN [Concomitant]
     Indication: TYPE 2 DIABETES MELLITUS
     Dosage: UNK
     Route: 058
     Dates: start: 201110

REACTIONS (4)
  - Cerebral infarction [Unknown]
  - Myocardial ischaemia [Unknown]
  - Essential hypertension [Unknown]
  - Body mass index increased [Unknown]
